FAERS Safety Report 4988638-4 (Version None)
Quarter: 2006Q2

REPORT INFORMATION
  Report Type: 
  Country: None (occurrence: None)
  Receive Date: 20060502
  Receipt Date: 20060421
  Transmission Date: 20061013
  Serious: Yes (Other)
  Sender: FDA-Public Use
  Company Number: JP-BRISTOL-MYERS SQUIBB COMPANY-13360581

PATIENT
  Age: 68 Year
  Sex: Male

DRUGS (1)
  1. IFOMIDE [Suspect]
     Indication: BONE SARCOMA
     Route: 042
     Dates: start: 20060127, end: 20060415

REACTIONS (1)
  - HYPOAESTHESIA [None]
